FAERS Safety Report 4604566-8 (Version None)
Quarter: 2005Q1

REPORT INFORMATION
  Report Type: 
  Country: None (occurrence: None)
  Receive Date: 20050310
  Receipt Date: 20041130
  Transmission Date: 20050727
  Serious: Yes (Hospitalization, Disabling)
  Sender: FDA-Public Use
  Company Number: US-MERCK-0412USA00155

PATIENT
  Age: 47 Year
  Sex: Female
  Weight: 67 kg

DRUGS (5)
  1. VIOXX [Suspect]
     Indication: FIBROMYALGIA
     Route: 048
     Dates: start: 20000501, end: 20020621
  2. VIOXX [Suspect]
     Indication: BACK PAIN
     Route: 048
     Dates: start: 20000501, end: 20020621
  3. SYNTHROID [Concomitant]
     Route: 065
  4. FIORINAL [Concomitant]
     Route: 065
  5. ZANTAC [Concomitant]
     Route: 065

REACTIONS (10)
  - BLOOD CHOLESTEROL INCREASED [None]
  - BLOOD PRESSURE INCREASED [None]
  - CEREBROVASCULAR ACCIDENT [None]
  - DEPRESSION [None]
  - FIBROMYALGIA [None]
  - INSOMNIA [None]
  - LABYRINTHITIS [None]
  - MALAISE [None]
  - SINUSITIS [None]
  - UPPER RESPIRATORY TRACT INFECTION [None]
